FAERS Safety Report 6983682-X (Version None)
Quarter: 2010Q3

REPORT INFORMATION
  Report Type: 
  Country: None (occurrence: None)
  Receive Date: 20100914
  Receipt Date: 20051220
  Transmission Date: 20110219
  Serious: Yes (Death)
  Sender: FDA-Public Use
  Company Number: US-WYE-H07163608

PATIENT
  Age: 87 Year
  Sex: Female

DRUGS (7)
  1. ADVIL LIQUI-GELS [Suspect]
     Dosage: 200 MG ONE TIME PER DAY AS NEEDED
     Route: 048
  2. LEVAQUIN [Concomitant]
  3. ASCORBIC ACID [Concomitant]
  4. ASPIRIN [Concomitant]
  5. CALCIUM [Concomitant]
  6. CELEBREX [Suspect]
     Indication: OSTEOARTHRITIS
     Dosage: 200 MG, FREQUENCY NOT PROVIDED
     Route: 048
     Dates: start: 20020620
  7. PREMARIN [Concomitant]

REACTIONS (1)
  - GASTROINTESTINAL HAEMORRHAGE [None]
